FAERS Safety Report 5430383-5 (Version None)
Quarter: 2007Q3

REPORT INFORMATION
  Report Type: 
  Country: None (occurrence: None)
  Receive Date: 20070830
  Receipt Date: 20070827
  Transmission Date: 20080115
  Serious: Yes (Life-Threatening)
  Sender: FDA-Public Use
  Company Number: FR-JNJFOC-20070805443

PATIENT
  Age: 81 Year
  Sex: Female

DRUGS (6)
  1. OFLOCET [Suspect]
     Indication: PROPHYLAXIS
     Route: 048
  2. XANAX [Concomitant]
     Indication: PROPHYLAXIS
     Route: 048
  3. PHENYLEPHRINE HYDROCHLORIDE [Concomitant]
     Indication: PROPHYLAXIS
     Route: 047
  4. TROPICAMIDE [Concomitant]
     Indication: PROPHYLAXIS
     Route: 047
  5. INDOCOLLYRE [Concomitant]
     Indication: PROPHYLAXIS
     Route: 047
  6. LEXOMIL [Concomitant]
     Route: 048

REACTIONS (4)
  - ANAPHYLACTIC SHOCK [None]
  - BRADYCARDIA [None]
  - HYPOTENSION [None]
  - LOSS OF CONSCIOUSNESS [None]
